FAERS Safety Report 6569448-3 (Version None)
Quarter: 2010Q1

REPORT INFORMATION
  Report Type: 
  Country: None (occurrence: None)
  Receive Date: 20100202
  Receipt Date: 20100202
  Transmission Date: 20100710
  Serious: Yes (Other)
  Sender: FDA-Public Use
  Company Number: None

PATIENT
  Sex: Female
  Weight: 55.3388 kg

DRUGS (1)
  1. NITROFURANTOIN MONOHYDRATE/MACROCRYSTALS [Suspect]
     Indication: HYPERSENSITIVITY
     Dosage: 1 CAPSULE X2 FOR 7 DAYS BY MOUTH
     Dates: start: 20091201

REACTIONS (1)
  - PRURITUS GENERALISED [None]
